FAERS Safety Report 10029598 (Version 1)
Quarter: 2014Q1

REPORT INFORMATION
  Report Type: Spontaneous
  Country: US (occurrence: None)
  Receive Date: 20140320
  Receipt Date: 20140320
  Transmission Date: 20141002
  Serious: Yes (Other)
  Sender: FDA-Public Use
  Company Number: None

PATIENT
  Sex: Female

DRUGS (10)
  1. AFINITOR [Suspect]
     Route: 048
     Dates: start: 20140130
  2. METHADONE [Concomitant]
  3. LYRICA [Concomitant]
  4. TEMAZEPAM [Concomitant]
  5. PROZAC [Concomitant]
  6. VIT D [Concomitant]
  7. MORPHINE [Concomitant]
  8. NORCO [Concomitant]
  9. EXTEMESTANE [Concomitant]
  10. CALCIUM [Concomitant]

REACTIONS (4)
  - Vomiting projectile [None]
  - Oral pain [None]
  - Rash [None]
  - Rash [None]
